FAERS Safety Report 20051035 (Version 1)
Quarter: 2021Q4

REPORT INFORMATION
  Report Type: Other
  Country: ES (occurrence: None)
  Receive Date: 20211110
  Receipt Date: 20211110
  Transmission Date: 20220303
  Serious: Yes (Hospitalization, Other)
  Sender: FDA-Public Use
  Company Number: ES-Umedica-000147

PATIENT
  Age: 30 Year
  Sex: Male

DRUGS (1)
  1. SILDENAFIL [Suspect]
     Active Substance: SILDENAFIL
     Indication: Erectile dysfunction
     Dosage: 200 MG PER DAY (4 TIMES ABOVE THE RECOMMENDED DOSE)

REACTIONS (3)
  - Status epilepticus [Unknown]
  - Overdose [Unknown]
  - Generalised tonic-clonic seizure [Unknown]
